FAERS Safety Report 4827111-0 (Version None)
Quarter: 2005Q4

REPORT INFORMATION
  Report Type: 
  Country: None (occurrence: None)
  Receive Date: 20051114
  Receipt Date: 20051110
  Transmission Date: 20060501
  Serious: Yes (Hospitalization)
  Sender: FDA-Public Use
  Company Number: FR-GLAXOSMITHKLINE-B0400038A

PATIENT
  Age: 53 Year
  Sex: Female
  Weight: 110 kg

DRUGS (14)
  1. CLAMOXYL [Suspect]
     Route: 042
     Dates: start: 20040927, end: 20041018
  2. CLAMOXYL [Suspect]
     Dosage: 8G PER DAY
     Route: 048
     Dates: start: 20041019, end: 20041025
  3. SERETIDE [Suspect]
     Indication: ASTHMA
     Route: 055
  4. TARGOCID [Suspect]
     Route: 042
     Dates: start: 20040927
  5. DAFALGAN [Suspect]
     Dosage: 1000MG THREE TIMES PER DAY
     Route: 048
  6. SINTROM [Suspect]
     Route: 048
  7. COVERSYL [Suspect]
     Indication: ESSENTIAL HYPERTENSION
     Dosage: 2MG PER DAY
     Route: 048
  8. HYDROCORTISONE [Concomitant]
     Route: 065
  9. ZYRTEC [Concomitant]
     Route: 065
  10. LEVOTHYROX [Concomitant]
     Route: 065
  11. TARDYFERON [Concomitant]
     Route: 065
  12. LEXOMIL [Concomitant]
     Route: 065
  13. IXEL [Concomitant]
     Route: 065
  14. B12 VITAMIN [Concomitant]
     Route: 065

REACTIONS (2)
  - IRON DEFICIENCY [None]
  - NEUTROPENIA [None]
